FAERS Safety Report 13100890 (Version 1)
Quarter: 2017Q1

REPORT INFORMATION
  Report Type: Spontaneous
  Country: US (occurrence: US)
  Receive Date: 20170110
  Receipt Date: 20170110
  Transmission Date: 20170428
  Serious: No
  Sender: FDA-Public Use
  Company Number: US-ASTRAZENECA-2016SF38279

PATIENT
  Age: 22186 Day
  Sex: Male
  Weight: 78 kg

DRUGS (20)
  1. MOVANTIK [Suspect]
     Active Substance: NALOXEGOL OXALATE
     Indication: CONSTIPATION
     Route: 048
     Dates: start: 20161220
  2. OXYCODONE [Concomitant]
     Active Substance: OXYCODONE
     Indication: BACK INJURY
     Route: 048
     Dates: start: 2013
  3. MOBIC [Concomitant]
     Active Substance: MELOXICAM
     Indication: BACK INJURY
     Dosage: 15 MG, DAILY STARTED IN 2009 OR 2010
     Route: 048
  4. MULTIVITAMIN [Concomitant]
     Active Substance: VITAMINS
     Indication: SUPPLEMENTATION THERAPY
     Route: 048
     Dates: start: 2016
  5. TRAMADOL. [Concomitant]
     Active Substance: TRAMADOL
     Indication: BACK INJURY
     Dosage: STOPPED IN 2011 OR 2012
     Route: 048
  6. IRON [Concomitant]
     Active Substance: IRON
     Indication: IRON DEFICIENCY
     Route: 048
     Dates: start: 2015, end: 2015
  7. OMEGA 3 FISH OIL [Concomitant]
     Active Substance: FISH OIL\OMEGA-3 FATTY ACIDS
     Indication: PROPHYLAXIS
     Dosage: TWO TIMES A DAY
     Route: 048
  8. OXYCODONE [Concomitant]
     Active Substance: OXYCODONE
     Indication: BACK INJURY
     Dosage: STARTED IN 2011 OR 2012 AT THE 5 MG DOSE
     Route: 048
  9. LISINOPRIL. [Suspect]
     Active Substance: LISINOPRIL
     Indication: BLOOD PRESSURE ABNORMAL
     Dosage: 10.0MG AS REQUIRED
     Route: 048
  10. LYRICA [Concomitant]
     Active Substance: PREGABALIN
     Indication: BACK INJURY
     Route: 048
  11. GABAPENTIN. [Concomitant]
     Active Substance: GABAPENTIN
     Indication: BACK INJURY
     Route: 048
  12. ONDANSETRON [Concomitant]
     Active Substance: ONDANSETRON
     Indication: RETCHING
     Dosage: 8.0MG AS REQUIRED
     Route: 048
     Dates: start: 201608
  13. SOMA [Concomitant]
     Active Substance: CARISOPRODOL
     Indication: BACK INJURY
     Route: 048
  14. CARVEDILOL. [Concomitant]
     Active Substance: CARVEDILOL
     Indication: PROPHYLAXIS
     Route: 048
     Dates: start: 2000
  15. DIAZEPAM. [Concomitant]
     Active Substance: DIAZEPAM
     Indication: NERVE INJURY
     Dosage: 2.5 MG IN THE EVENING AND 2.5 MG AT BEDTIME
     Route: 048
     Dates: start: 2015
  16. DICYCLOMINE [Concomitant]
     Active Substance: DICYCLOMINE HYDROCHLORIDE
     Indication: PROPHYLAXIS
     Route: 048
     Dates: start: 201608
  17. LISINOPRIL. [Suspect]
     Active Substance: LISINOPRIL
     Indication: BLOOD PRESSURE ABNORMAL
     Dosage: 20.0MG AS REQUIRED
     Route: 048
     Dates: start: 2015
  18. NUCYNTA [Concomitant]
     Active Substance: TAPENTADOL HYDROCHLORIDE
     Indication: BACK INJURY
     Route: 048
     Dates: start: 2009, end: 2009
  19. LIPITOR [Concomitant]
     Active Substance: ATORVASTATIN CALCIUM
     Indication: BLOOD CHOLESTEROL ABNORMAL
     Route: 048
  20. LISINOPRIL. [Suspect]
     Active Substance: LISINOPRIL
     Indication: BLOOD PRESSURE ABNORMAL
     Route: 048
     Dates: start: 2000, end: 2015

REACTIONS (20)
  - Pain [Not Recovered/Not Resolved]
  - Product use issue [Not Recovered/Not Resolved]
  - Back pain [Not Recovered/Not Resolved]
  - Abdominal discomfort [Not Recovered/Not Resolved]
  - Decreased appetite [Not Recovered/Not Resolved]
  - Chills [Not Recovered/Not Resolved]
  - Off label use [Not Recovered/Not Resolved]
  - Constipation [Not Recovered/Not Resolved]
  - Limb injury [Unknown]
  - Hyperhidrosis [Not Recovered/Not Resolved]
  - Drug withdrawal syndrome [Not Recovered/Not Resolved]
  - Blood pressure fluctuation [Not Recovered/Not Resolved]
  - Blood iron decreased [Recovered/Resolved]
  - Retching [Not Recovered/Not Resolved]
  - Abdominal pain upper [Not Recovered/Not Resolved]
  - Insomnia [Not Recovered/Not Resolved]
  - Headache [Not Recovered/Not Resolved]
  - Back injury [Unknown]
  - Flatulence [Not Recovered/Not Resolved]
  - Musculoskeletal pain [Not Recovered/Not Resolved]

NARRATIVE: CASE EVENT DATE: 20090729
